FAERS Safety Report 4525200-1 (Version None)
Quarter: 2004Q4

REPORT INFORMATION
  Report Type: 
  Country: None (occurrence: None)
  Receive Date: 20041117
  Receipt Date: 20040217
  Transmission Date: 20050328
  Serious: Yes (Other)
  Sender: FDA-Public Use
  Company Number: 2004S1000487

PATIENT
  Sex: Male

DRUGS (12)
  1. CLOZAPINE [Suspect]
     Indication: PSYCHOTIC DISORDER
     Dosage: 200 MG Q AM, 300MG Q HS ORAL
     Route: 048
     Dates: end: 20000101
  2. CLOZAPINE [Suspect]
     Indication: SCHIZOPHRENIA, PARANOID TYPE
     Dosage: 200 MG Q AM, 300MG Q HS ORAL
     Route: 048
     Dates: end: 20000101
  3. CLOZAPINE [Suspect]
     Indication: PSYCHOTIC DISORDER
     Dosage: 200 MG Q AM, 300MG Q HS ORAL
     Route: 048
     Dates: start: 20020905, end: 20040209
  4. CLOZAPINE [Suspect]
     Indication: SCHIZOPHRENIA, PARANOID TYPE
     Dosage: 200 MG Q AM, 300MG Q HS ORAL
     Route: 048
     Dates: start: 20020905, end: 20040209
  5. CLOZAPINE [Suspect]
     Indication: PSYCHOTIC DISORDER
     Dosage: 200 MG Q AM, 300MG Q HS ORAL
     Route: 048
     Dates: start: 20040201
  6. CLOZAPINE [Suspect]
     Indication: SCHIZOPHRENIA, PARANOID TYPE
     Dosage: 200 MG Q AM, 300MG Q HS ORAL
     Route: 048
     Dates: start: 20040201
  7. RISPERIDONE [Concomitant]
  8. LORAZEPAM [Concomitant]
  9. PROCYCLIDINE HYDROCHLORIDE 5MG TAB [Concomitant]
  10. LEVOTHYROXINE SODIUM [Concomitant]
  11. DOCUSATE SODIUM [Concomitant]
  12. DESMOPRESSIN [Concomitant]

REACTIONS (1)
  - NEUTROPENIA [None]
